FAERS Safety Report 5410607-0 (Version None)
Quarter: 2007Q3

REPORT INFORMATION
  Report Type: 
  Country: None (occurrence: None)
  Receive Date: 20070810
  Receipt Date: 20070404
  Transmission Date: 20080115
  Serious: No
  Sender: FDA-Public Use
  Company Number: A0646158A

PATIENT
  Sex: Male

DRUGS (1)
  1. PAXIL [Suspect]
     Indication: DEPRESSION
     Dosage: 60MG PER DAY
     Route: 048

REACTIONS (9)
  - CONFUSIONAL STATE [None]
  - DISCOMFORT [None]
  - DISTURBANCE IN ATTENTION [None]
  - DRUG WITHDRAWAL SYNDROME [None]
  - FEELING ABNORMAL [None]
  - IRRITABILITY [None]
  - NASOPHARYNGITIS [None]
  - SENSATION OF PRESSURE [None]
  - TENSION [None]
